FAERS Safety Report 10791415 (Version 1)
Quarter: 2015Q1

REPORT INFORMATION
  Report Type: Spontaneous
  Country: US (occurrence: US)
  Receive Date: 20150213
  Receipt Date: 20150213
  Transmission Date: 20150721
  Serious: No
  Sender: FDA-Public Use
  Company Number: US-GLAXOSMITHKLINE-A1083997A

PATIENT

DRUGS (1)
  1. NICODERM CQ [Suspect]
     Active Substance: NICOTINE

REACTIONS (4)
  - Drug ineffective [Unknown]
  - Application site urticaria [Unknown]
  - Application site irritation [Recovered/Resolved]
  - Application site pruritus [Unknown]
